FAERS Safety Report 5304826-1 (Version None)
Quarter: 2007Q2

REPORT INFORMATION
  Report Type: 
  Country: None (occurrence: None)
  Receive Date: 20070423
  Receipt Date: 20070412
  Transmission Date: 20071010
  Serious: Yes (Life-Threatening)
  Sender: FDA-Public Use
  Company Number: JP-SANOFI-SYNTHELABO-A01200702795

PATIENT
  Sex: Female
  Weight: 32 kg

DRUGS (5)
  1. ISOVORIN [Concomitant]
     Route: 041
     Dates: start: 20060509, end: 20070208
  2. OXALIPLATIN [Suspect]
     Indication: RECTAL CANCER
     Route: 041
     Dates: start: 20070208, end: 20070208
  3. KYTRIL [Concomitant]
     Indication: PREMEDICATION
     Route: 041
     Dates: start: 20060509, end: 20070208
  4. DECADRON [Concomitant]
     Indication: PREMEDICATION
     Route: 041
     Dates: start: 20060509, end: 20070208
  5. FLUOROURACIL [Suspect]
     Dosage: 500 MG/BODY=434.8 MG/M2 BOLUS THEN 1500 MG/BODY=1304.3 MG/M2 INFUSION D1-2
     Route: 042
     Dates: start: 20070208, end: 20070208

REACTIONS (3)
  - DISSEMINATED INTRAVASCULAR COAGULATION [None]
  - HAEMOGLOBIN DECREASED [None]
  - THROMBOCYTOPENIA [None]
